FAERS Safety Report 8574937-6 (Version None)
Quarter: 2012Q3

REPORT INFORMATION
  Report Type: 
  Country: None (occurrence: None)
  Receive Date: 20120807
  Receipt Date: 20120726
  Transmission Date: 20120928
  Serious: Yes (Hospitalization)
  Sender: FDA-Public Use
  Company Number: US-BAYER-2012-071205

PATIENT
  Age: 44 Year
  Sex: Female
  Weight: 117.91 kg

DRUGS (6)
  1. YAZ [Suspect]
     Indication: PREMENSTRUAL SYNDROME
     Dosage: UNK
     Dates: start: 20100201, end: 20100801
  2. SELECTIVE IMMUNOSUPPRESSIVE AGENTS [Concomitant]
     Route: 048
  3. RISPERDAL [Concomitant]
     Dosage: 2 MG, HS
     Route: 048
     Dates: start: 20090703
  4. MULTI-VITAMIN [Concomitant]
     Route: 048
  5. WELLBUTRIN [Concomitant]
     Dosage: 200 MG,
     Route: 048
     Dates: start: 20090703
  6. LEXAPRO [Concomitant]
     Dosage: 20 MG,
     Route: 048
     Dates: start: 20090703

REACTIONS (6)
  - EMOTIONAL DISTRESS [None]
  - ANXIETY [None]
  - INJURY [None]
  - PAIN [None]
  - PULMONARY EMBOLISM [None]
  - GENERAL PHYSICAL HEALTH DETERIORATION [None]
